FAERS Safety Report 19507000 (Version 6)
Quarter: 2021Q3

REPORT INFORMATION
  Report Type: Report from Study
  Country: US (occurrence: US)
  Receive Date: 20210708
  Receipt Date: 20210929
  Transmission Date: 20211014
  Serious: No
  Sender: FDA-Public Use
  Company Number: NVSC2021US142610

PATIENT
  Age: 68 Year
  Sex: Male

DRUGS (2)
  1. INSULIN [Concomitant]
     Active Substance: INSULIN NOS
     Indication: TYPE 2 DIABETES MELLITUS
     Dosage: UNK UNK, UNKNOWN
     Route: 065
  2. ENTRESTO [Suspect]
     Active Substance: SACUBITRIL\VALSARTAN
     Indication: CARDIAC FAILURE
     Dosage: 50 MG, BID(24/26 MG)
     Route: 048
     Dates: start: 20201031

REACTIONS (15)
  - Pollakiuria [Unknown]
  - Blood sodium decreased [Unknown]
  - Weight increased [Unknown]
  - Hypotension [Unknown]
  - Weight decreased [Unknown]
  - Abdominal discomfort [Unknown]
  - Dizziness [Unknown]
  - Tachyphrenia [Unknown]
  - Blood glucose increased [Unknown]
  - Malaise [Unknown]
  - Fatigue [Unknown]
  - Nausea [Recovering/Resolving]
  - Insomnia [Unknown]
  - Balance disorder [Unknown]
  - Asthenia [Unknown]

NARRATIVE: CASE EVENT DATE: 202106
